FAERS Safety Report 10245047 (Version 3)
Quarter: 2014Q3

REPORT INFORMATION
  Report Type: Spontaneous
  Country: IT (occurrence: None)
  Receive Date: 20140616
  Receipt Date: 20140812
  Transmission Date: 20150326
  Serious: Yes (Other)
  Sender: FDA-Public Use
  Company Number: AUR-APL-2014-06287

PATIENT
  Age: 3 Year
  Sex: Female

DRUGS (2)
  1. ACICLOVIR (ACICLOVIR) [Suspect]
     Active Substance: ACYCLOVIR
     Indication: PRODUCT USED FOR UNKNOWN INDICATION
     Dosage: 8 G, TOTAL
     Dates: start: 20140523, end: 20140523
  2. ACICLOVIR (ACICLOVIR) [Suspect]
     Active Substance: ACYCLOVIR
     Indication: VARICELLA
     Dosage: 8 G, TOTAL
     Dates: start: 20140523, end: 20140523

REACTIONS (3)
  - Overdose [None]
  - Accidental exposure to product by child [None]
  - Aspartate aminotransferase increased [None]

NARRATIVE: CASE EVENT DATE: 20140523
